FAERS Safety Report 4347718-7 (Version None)
Quarter: 2004Q2

REPORT INFORMATION
  Report Type: 
  Country: None (occurrence: None)
  Receive Date: 20040422
  Receipt Date: 20040419
  Transmission Date: 20050107
  Serious: Yes (Death, Hospitalization)
  Sender: FDA-Public Use
  Company Number: US-JNJFOC-20040402014

PATIENT
  Age: 80 Year
  Sex: Female

DRUGS (15)
  1. DURAGESIC [Suspect]
     Indication: PAIN
     Dosage: 75 UG/HR, 1 IN 72 HOUR, TRANSDERMAL; 50 UR/HR, 1 IN 72 HOUR, TRANSDERMAL; 25 UG/HR, 1 IN 72 HOUR, TR
     Route: 062
     Dates: start: 20040301, end: 20040401
  2. DURAGESIC [Suspect]
     Indication: PAIN
     Dosage: 75 UG/HR, 1 IN 72 HOUR, TRANSDERMAL; 50 UR/HR, 1 IN 72 HOUR, TRANSDERMAL; 25 UG/HR, 1 IN 72 HOUR, TR
     Route: 062
     Dates: start: 20040401, end: 20040404
  3. DURAGESIC [Suspect]
     Indication: PAIN
     Dosage: 75 UG/HR, 1 IN 72 HOUR, TRANSDERMAL; 50 UR/HR, 1 IN 72 HOUR, TRANSDERMAL; 25 UG/HR, 1 IN 72 HOUR, TR
     Route: 062
     Dates: start: 20040405
  4. DILANTIN [Concomitant]
  5. PAXIL [Concomitant]
  6. CARDENE [Concomitant]
  7. CELEBREX [Concomitant]
  8. PROCRIT (ERYTHROPOIETIN) [Concomitant]
  9. NEUPOGEN [Concomitant]
  10. TAPAZOLE [Concomitant]
  11. PROTONIX [Concomitant]
  12. COMPAZINE [Concomitant]
  13. MECLIZINE [Concomitant]
  14. FLUDROCORTISONE ACETATE TAB [Concomitant]
  15. ATIVAN [Concomitant]

REACTIONS (2)
  - ABASIA [None]
  - DYSSTASIA [None]
